FAERS Safety Report 14459647 (Version 1)
Quarter: 2018Q1

REPORT INFORMATION
  Report Type: Spontaneous
  Country: JP (occurrence: JP)
  Receive Date: 20180130
  Receipt Date: 20180130
  Transmission Date: 20180509
  Serious: Yes (Other)
  Sender: FDA-Public Use
  Company Number: JP-CONCORDIA PHARMACEUTICALS INC.-E2B_00009662

PATIENT
  Sex: Male

DRUGS (2)
  1. NOURIAST [Suspect]
     Active Substance: ISTRADEFYLLINE
     Indication: PRODUCT USED FOR UNKNOWN INDICATION
     Dosage: UNKNOWN
     Route: 048
  2. ZONISAMIDE CAPSULE [Suspect]
     Active Substance: ZONISAMIDE
     Indication: PARKINSON^S DISEASE
     Route: 048

REACTIONS (1)
  - Delirium [Recovered/Resolved]
